FAERS Safety Report 14711655 (Version 1)
Quarter: 2018Q2

REPORT INFORMATION
  Report Type: Report from Study
  Country: DO (occurrence: DO)
  Receive Date: 20180403
  Receipt Date: 20180403
  Transmission Date: 20180711
  Serious: Yes (Other)
  Sender: FDA-Public Use
  Company Number: PHHY2018DO053197

PATIENT
  Age: 96 Year
  Sex: Female

DRUGS (1)
  1. EXFORGE [Suspect]
     Active Substance: AMLODIPINE BESYLATE\VALSARTAN
     Indication: CARDIAC DISORDER
     Dosage: (AMLODIPINE 10 MG, VALSARTAN 320 MG)
     Route: 065

REACTIONS (4)
  - Gait inability [Unknown]
  - Osteoarthritis [Unknown]
  - Blood glucose abnormal [Recovering/Resolving]
  - Product use in unapproved indication [Unknown]
